FAERS Safety Report 23752938 (Version 2)
Quarter: 2024Q2

REPORT INFORMATION
  Report Type: Spontaneous
  Country: US (occurrence: US)
  Receive Date: 20240417
  Receipt Date: 20240528
  Transmission Date: 20240715
  Serious: Yes (Other)
  Sender: FDA-Public Use
  Company Number: US-PFIZER INC-PV202400050451

PATIENT
  Age: 75 Year
  Sex: Female
  Weight: 61.406 kg

DRUGS (1)
  1. IBRANCE [Suspect]
     Active Substance: PALBOCICLIB
     Indication: Breast cancer female
     Dosage: 1 PO Q DAY FOR 21 DAYS.
     Route: 048
     Dates: start: 20240122

REACTIONS (1)
  - Choking [Unknown]

NARRATIVE: CASE EVENT DATE: 20240101
